FAERS Safety Report 4808775-4 (Version None)
Quarter: 2005Q4

REPORT INFORMATION
  Report Type: 
  Country: None (occurrence: None)
  Receive Date: 20051021
  Receipt Date: 20040209
  Transmission Date: 20060501
  Serious: Yes (Life-Threatening)
  Sender: FDA-Public Use
  Company Number: EWC040237993

PATIENT
  Age: 37 Year
  Sex: Male

DRUGS (3)
  1. ZYPREXA [Suspect]
     Indication: SCHIZOPHRENIA
     Dosage: 15 MG/DAY
     Dates: start: 20030101, end: 20040109
  2. TOPAMAX [Concomitant]
  3. METHADONE HCL [Concomitant]

REACTIONS (2)
  - HYPERCOAGULATION [None]
  - PULMONARY EMBOLISM [None]
